FAERS Safety Report 19893980 (Version 3)
Quarter: 2022Q1

REPORT INFORMATION
  Report Type: Spontaneous
  Country: ES (occurrence: ES)
  Receive Date: 20210928
  Receipt Date: 20220112
  Transmission Date: 20220423
  Serious: Yes (Other)
  Sender: FDA-Public Use
  Company Number: None

PATIENT
  Age: 54 Year
  Sex: Female

DRUGS (1)
  1. OLMESARTAN MEDOXOMIL [Suspect]
     Active Substance: OLMESARTAN MEDOXOMIL
     Indication: Hypertension
     Dosage: 40 MG, QD

REACTIONS (5)
  - Drug-induced liver injury [Recovered/Resolved]
  - Hepatic fibrosis [Recovered/Resolved]
  - Antinuclear antibody positive [Recovered/Resolved]
  - Lymphocytic infiltration [Recovered/Resolved]
  - Hepatic steatosis [Recovered/Resolved]
